FAERS Safety Report 16215897 (Version 1)
Quarter: 2019Q2

REPORT INFORMATION
  Report Type: Spontaneous
  Country: US (occurrence: US)
  Receive Date: 20190419
  Receipt Date: 20190419
  Transmission Date: 20190711
  Serious: No
  Sender: FDA-Public Use
  Company Number: US-INSMED, INC.-US-INS-19-00576

PATIENT
  Sex: Female
  Weight: 54 kg

DRUGS (3)
  1. ARIKAYCE [Suspect]
     Active Substance: AMIKACIN
     Indication: CYSTIC FIBROSIS
     Route: 055
     Dates: start: 201901
  2. LAMIRA NEBULIZER SYSTEM [Suspect]
     Active Substance: DEVICE
  3. AMIKACIN. [Concomitant]
     Active Substance: AMIKACIN
     Indication: CYSTIC FIBROSIS
     Dates: start: 2019

REACTIONS (2)
  - Product dose omission [Unknown]
  - Off label use [Unknown]
